FAERS Safety Report 4612303-6 (Version None)
Quarter: 2005Q2

REPORT INFORMATION
  Report Type: 
  Country: None (occurrence: None)
  Receive Date: 20050308
  Receipt Date: 20050117
  Transmission Date: 20051028
  Serious: No
  Sender: FDA-Public Use
  Company Number: 2005UW01182

PATIENT
  Age: 48 Year
  Sex: Female

DRUGS (4)
  1. CRESTOR [Suspect]
     Dosage: 10 MG QD PO
     Route: 048
  2. LIPITOR [Suspect]
     Dosage: 40 MG QD PO
     Route: 048
  3. IBUPROFEN [Concomitant]
  4. VIOXX [Concomitant]

REACTIONS (1)
  - FIBROMYALGIA [None]
